FAERS Safety Report 5165580-X (Version None)
Quarter: 2006Q4

REPORT INFORMATION
  Report Type: 
  Country: None (occurrence: None)
  Receive Date: 20061206
  Receipt Date: 20060915
  Transmission Date: 20070319
  Serious: Yes (Death, Hospitalization)
  Sender: FDA-Public Use
  Company Number: JP-JPN-A200603722

PATIENT
  Age: 77 Year
  Sex: Male
  Weight: 43 kg

DRUGS (11)
  1. ALKERAN [Suspect]
     Indication: MULTIPLE MYELOMA
     Dosage: 4MG PER DAY
     Route: 048
     Dates: start: 20051206, end: 20060913
  2. PREDONINE [Concomitant]
     Indication: MULTIPLE MYELOMA
     Dosage: 2TAB PER DAY
     Route: 048
     Dates: start: 20051206, end: 20061016
  3. PRIMOBOLAN-DEPOT INJ [Concomitant]
     Indication: OSTEOPOROSIS
     Dosage: 4TAB PER DAY
     Route: 048
     Dates: end: 20061016
  4. ZANTAC [Concomitant]
     Indication: GASTRITIS
     Dosage: 4TAB PER DAY
     Route: 048
     Dates: end: 20061016
  5. DIGOXIN [Concomitant]
     Indication: SUPRAVENTRICULAR TACHYCARDIA
     Route: 048
     Dates: end: 20061016
  6. AMLODIPINE BESYLATE [Concomitant]
     Indication: ANGINA PECTORIS
     Dosage: 1TAB PER DAY
     Route: 048
     Dates: end: 20061016
  7. MEVALOTIN [Concomitant]
     Dosage: 1TAB PER DAY
     Route: 048
  8. HARNAL [Concomitant]
     Indication: BENIGN PROSTATIC HYPERPLASIA
     Dosage: 1TAB PER DAY
     Route: 048
     Dates: end: 20061016
  9. MOBIC [Concomitant]
     Indication: LUMBAR VERTEBRAL FRACTURE
     Dosage: 1TAB PER DAY
     Route: 048
  10. UNKNOWN DRUG [Concomitant]
     Indication: ANGINA PECTORIS
     Dosage: 4TAB PER DAY
     Route: 048
     Dates: end: 20061016
  11. PURSENNID [Concomitant]
     Indication: CONSTIPATION
     Dosage: 2TAB PER DAY
     Route: 048
     Dates: end: 20061016

REACTIONS (3)
  - ANAEMIA [None]
  - CYSTITIS HAEMORRHAGIC [None]
  - DEATH [None]
